APPROVED DRUG PRODUCT: PROPAFENONE HYDROCHLORIDE
Active Ingredient: PROPAFENONE HYDROCHLORIDE
Strength: 325MG
Dosage Form/Route: CAPSULE, EXTENDED RELEASE;ORAL
Application: A205268 | Product #002 | TE Code: AB
Applicant: GLENMARK PHARMACEUTICALS LTD
Approved: Sep 8, 2017 | RLD: No | RS: No | Type: RX